FAERS Safety Report 23043458 (Version 1)
Quarter: 2023Q4

REPORT INFORMATION
  Report Type: Spontaneous
  Country: GB (occurrence: GB)
  Receive Date: 20231009
  Receipt Date: 20231009
  Transmission Date: 20240109
  Serious: Yes (Hospitalization)
  Sender: FDA-Public Use
  Company Number: GB-ROCHE-3395695

PATIENT
  Age: 77 Year
  Weight: 91.7 kg

DRUGS (4)
  1. CYCLOPHOSPHAMIDE [Suspect]
     Active Substance: CYCLOPHOSPHAMIDE
     Indication: Follicular lymphoma
     Dosage: ON 22/JUN/2023, LAST DOSE OF CYCLOPHOSPHAMIDE WAS ADMINISTERED BEFORE EVENT ONSET; ;
     Route: 065
     Dates: start: 20230308
  2. OBINUTUZUMAB [Suspect]
     Active Substance: OBINUTUZUMAB
     Indication: Follicular lymphoma
     Dosage: ON 22/JUN/2023, LAST OF OBINUTUZUMAB WAS ADMINISTERED
     Route: 042
     Dates: start: 20230308
  3. PREDNISONE [Suspect]
     Active Substance: PREDNISONE
     Indication: Follicular lymphoma
     Dosage: ON 22/JUN/2023, LAST DOSE OF PREDNISONE WAS ADMINISTERED BEFORE EVENT ONSET
     Route: 065
     Dates: start: 20230308
  4. VINCRISTINE [Suspect]
     Active Substance: VINCRISTINE
     Indication: Follicular lymphoma
     Dosage: ON 22/JUN/2023, LAST DOSE OF VINCRISTINE WAS ADMINISTERED BEFORE EVENT ONSET; ;
     Route: 065
     Dates: start: 20230308

REACTIONS (1)
  - Neutropenic sepsis [Recovered/Resolved]

NARRATIVE: CASE EVENT DATE: 20230627
